FAERS Safety Report 6937324-X (Version None)
Quarter: 2010Q3

REPORT INFORMATION
  Report Type: 
  Country: None (occurrence: None)
  Receive Date: 20100823
  Receipt Date: 20100812
  Transmission Date: 20110219
  Serious: Yes (Death)
  Sender: FDA-Public Use
  Company Number: HR-WATSON-2010-10714

PATIENT
  Age: 70 Year
  Sex: Female

DRUGS (1)
  1. CARVEDILOL (WATSON LABORATORIES) [Suspect]
     Indication: HYPERTENSION
     Dosage: 2 X 12 1/2  MG, DAILY

REACTIONS (3)
  - MULTI-ORGAN FAILURE [None]
  - SEPSIS SYNDROME [None]
  - TOXIC EPIDERMAL NECROLYSIS [None]
